FAERS Safety Report 5132596-9 (Version None)
Quarter: 2006Q4

REPORT INFORMATION
  Report Type: 
  Country: None (occurrence: None)
  Receive Date: 20061017
  Receipt Date: 20061003
  Transmission Date: 20070319
  Serious: Yes (Hospitalization)
  Sender: FDA-Public Use
  Company Number: 2006SP003654

PATIENT
  Age: 43 Year
  Sex: Female

DRUGS (1)
  1. PEGATRON (PEGYLATED INTERFERON ALFA-2B W/RIBAVIRIN) [Suspect]
     Indication: HEPATITIS C VIRUS

REACTIONS (6)
  - ALANINE AMINOTRANSFERASE ABNORMAL [None]
  - EPISTAXIS [None]
  - HAEMOGLOBIN ABNORMAL [None]
  - MIGRAINE [None]
  - PLATELET COUNT ABNORMAL [None]
  - VAGINAL HAEMORRHAGE [None]
